FAERS Safety Report 7034018-X (Version None)
Quarter: 2010Q4

REPORT INFORMATION
  Report Type: 
  Country: None (occurrence: None)
  Receive Date: 20101007
  Receipt Date: 20100930
  Transmission Date: 20110411
  Serious: Yes (Other)
  Sender: FDA-Public Use
  Company Number: AU-WYE-G06634610

PATIENT
  Sex: Male

DRUGS (19)
  1. PRISTIQ [Suspect]
     Indication: MAJOR DEPRESSION
     Dosage: 300MG REDUCED TO 200MG AND WILL SOON BE REDUCED TO 100MG
     Route: 048
     Dates: start: 20090101
  2. ALVESCO [Concomitant]
  3. ANPEC [Concomitant]
  4. ATROVENT [Concomitant]
  5. AVAPRO [Concomitant]
  6. BRICANYL [Concomitant]
  7. LASIX [Concomitant]
  8. MIRTAZAPINE [Concomitant]
  9. NITROLINGUAL PUMPSPRAY [Concomitant]
  10. OXIS TURBUHALER [Concomitant]
  11. PANAFCORT [Concomitant]
  12. PANAMAX [Concomitant]
  13. PLAVIX [Concomitant]
  14. SINGULAIR [Concomitant]
  15. TRANSDERM-NITRO [Concomitant]
  16. VALIUM [Concomitant]
  17. VENTOLIN RESPIRATOR [Concomitant]
  18. VENTOLIN NEBULES PF [Concomitant]
  19. ACTONEL [Concomitant]

REACTIONS (1)
  - GLAUCOMA [None]
